FAERS Safety Report 6052715-X (Version None)
Quarter: 2009Q1

REPORT INFORMATION
  Report Type: 
  Country: None (occurrence: None)
  Receive Date: 20090127
  Receipt Date: 20081215
  Transmission Date: 20090719
  Serious: Yes (Death)
  Sender: FDA-Public Use
  Company Number: US-PFIZER INC-2008153388

PATIENT
  Age: 44 Year
  Sex: Female

DRUGS (5)
  1. DILTIAZEM HCL [Suspect]
  2. HYDROXYZINE HCL [Suspect]
  3. IBUPROFEN [Suspect]
  4. COCAINE [Suspect]
  5. ACETAMINOPHEN [Suspect]

REACTIONS (1)
  - COMPLETED SUICIDE [None]
